FAERS Safety Report 19763601 (Version 1)
Quarter: 2021Q3

REPORT INFORMATION
  Report Type: Spontaneous
  Country: CN (occurrence: CN)
  Receive Date: 20210830
  Receipt Date: 20210830
  Transmission Date: 20211014
  Serious: Yes (Other)
  Sender: FDA-Public Use
  Company Number: NVSC2021CN176185

PATIENT
  Sex: Female

DRUGS (2)
  1. TOBRADEX [Suspect]
     Active Substance: DEXAMETHASONE\TOBRAMYCIN
     Dosage: ONCE AT 9:00 AM, AT 14:25, AT 18:00, AT APPROXIMATELY 22:00 (PURCHASED IN JAN 2021) AND OPEN IN JAN
     Route: 065
     Dates: start: 2021
  2. TOBRADEX [Suspect]
     Active Substance: DEXAMETHASONE\TOBRAMYCIN
     Indication: GLAUCOMA
     Dosage: 3 DROPS ON DAY 1, 2 DROPS ON DAY 2, 1 DROP ON DAY 3 AND HALF OF A DROP ON DAY 4
     Route: 065
     Dates: start: 2010

REACTIONS (5)
  - Product quality issue [Unknown]
  - Off label use [Unknown]
  - Visual acuity reduced [Recovered/Resolved]
  - Incorrect product administration duration [Unknown]
  - Therapeutic response unexpected [Unknown]

NARRATIVE: CASE EVENT DATE: 20210729
